FAERS Safety Report 21290251 (Version 2)
Quarter: 2022Q3

REPORT INFORMATION
  Report Type: Spontaneous
  Country: JP (occurrence: JP)
  Receive Date: 20220902
  Receipt Date: 20220923
  Transmission Date: 20221027
  Serious: Yes (Hospitalization, Other)
  Sender: FDA-Public Use
  Company Number: JP-PFIZER INC-PV202200054010

PATIENT
  Age: 73 Year
  Sex: Female
  Weight: 63 kg

DRUGS (8)
  1. SULFASALAZINE [Suspect]
     Active Substance: SULFASALAZINE
     Indication: Colitis ulcerative
     Dosage: 1000 MG, 4X/DAY
     Route: 048
     Dates: start: 20220524, end: 20220718
  2. PREDNISOLONE [Concomitant]
     Active Substance: PREDNISOLONE
     Dosage: 40 MG
     Route: 048
     Dates: start: 20220607, end: 20220614
  3. PREDNISOLONE [Concomitant]
     Active Substance: PREDNISOLONE
     Dosage: 30 MG
     Route: 048
     Dates: start: 20220615, end: 20220628
  4. PREDNISOLONE [Concomitant]
     Active Substance: PREDNISOLONE
     Dosage: 20 MG
     Route: 048
     Dates: start: 20220629, end: 20220713
  5. PREDNISOLONE [Concomitant]
     Active Substance: PREDNISOLONE
     Dosage: 15 MG
     Route: 048
     Dates: start: 20220714, end: 20220720
  6. PREDNISOLONE [Concomitant]
     Active Substance: PREDNISOLONE
     Dosage: 10 MG
     Route: 048
     Dates: start: 20220721, end: 20220721
  7. NEXIUM [Concomitant]
     Active Substance: ESOMEPRAZOLE MAGNESIUM
     Dosage: 20 MG
     Route: 048
     Dates: start: 20220607, end: 20220721
  8. LAC-B GRANULAR POWDER N [Concomitant]
     Dosage: 3 G
     Route: 048
     Dates: start: 20220530, end: 20220721

REACTIONS (5)
  - Agranulocytosis [Recovered/Resolved]
  - Septic shock [Recovered/Resolved]
  - Spontaneous haemorrhage [Unknown]
  - Condition aggravated [Unknown]
  - Ulcer [Unknown]

NARRATIVE: CASE EVENT DATE: 20220101
